FAERS Safety Report 6761426-4 (Version None)
Quarter: 2010Q2

REPORT INFORMATION
  Report Type: 
  Country: None (occurrence: None)
  Receive Date: 20100608
  Receipt Date: 20100529
  Transmission Date: 20101027
  Serious: Yes (Other)
  Sender: FDA-Public Use
  Company Number: BR-ROCHE-703313

PATIENT
  Sex: Female
  Weight: 49.9 kg

DRUGS (2)
  1. ROACUTAN [Suspect]
     Indication: DRUG USE FOR UNKNOWN INDICATION
     Dosage: FREQUENCY: 2 CAP/ DAY
     Route: 065
     Dates: start: 20091213, end: 20100122
  2. ROACUTAN [Suspect]
     Route: 065
     Dates: start: 20100129

REACTIONS (2)
  - PARATHYROID TUMOUR [None]
  - THYROID NEOPLASM [None]
